FAERS Safety Report 19974415 (Version 1)
Quarter: 2021Q4

REPORT INFORMATION
  Report Type: Spontaneous
  Country: US (occurrence: US)
  Receive Date: 20211020
  Receipt Date: 20211020
  Transmission Date: 20220304
  Serious: No
  Sender: FDA-Public Use
  Company Number: US-SANOFI-00814847

PATIENT
  Sex: Male

DRUGS (1)
  1. LANTUS SOLOSTAR [Suspect]
     Active Substance: INSULIN GLARGINE
     Dosage: 20 UNITS IN THE MORNING AND 20 AT NIGHT
     Route: 065

REACTIONS (1)
  - Inappropriate schedule of product administration [Unknown]
